FAERS Safety Report 14384548 (Version 5)
Quarter: 2022Q2

REPORT INFORMATION
  Report Type: Spontaneous
  Country: PT (occurrence: PT)
  Receive Date: 20180115
  Receipt Date: 20220427
  Transmission Date: 20220721
  Serious: Yes (Hospitalization, Disabling, Other)
  Sender: FDA-Public Use
  Company Number: PT-ACCORD-062425

PATIENT
  Age: 70 Year
  Sex: Female

DRUGS (6)
  1. CARBOPLATIN [Suspect]
     Active Substance: CARBOPLATIN
     Indication: Neuroendocrine carcinoma
     Dosage: UNK, 1 CYCLICAL
     Route: 065
  2. CARBOPLATIN [Suspect]
     Active Substance: CARBOPLATIN
     Dosage: UNK, CYCLICAL
     Route: 065
  3. CARBOPLATIN [Suspect]
     Active Substance: CARBOPLATIN
     Dosage: UNK
  4. DOCETAXEL [Suspect]
     Active Substance: DOCETAXEL
     Indication: Lung neoplasm malignant
     Dosage: UNK, 1 CYCLICAL
     Route: 065
  5. DOCETAXEL [Suspect]
     Active Substance: DOCETAXEL
     Indication: Neuroendocrine tumour of the lung metastatic
     Dosage: UNK, CYCLICAL
     Route: 065
  6. DOCETAXEL [Suspect]
     Active Substance: DOCETAXEL
     Indication: Neuroendocrine carcinoma
     Dosage: UNK

REACTIONS (17)
  - Amaurosis [Unknown]
  - Panophthalmitis [Unknown]
  - Bacteraemia [Unknown]
  - Febrile neutropenia [Recovering/Resolving]
  - Pyelonephritis [Unknown]
  - Immunosuppression [Unknown]
  - Bacterial pyelonephritis [Recovered/Resolved]
  - Escherichia sepsis [Unknown]
  - Urosepsis [Unknown]
  - Escherichia bacteraemia [Recovering/Resolving]
  - Inflammation [Unknown]
  - Cellulitis orbital [Unknown]
  - Endophthalmitis [Unknown]
  - Eye pruritus [Unknown]
  - Off label use [Unknown]
  - Product use in unapproved indication [Unknown]
  - Pruritus [Unknown]
